FAERS Safety Report 8313545-9 (Version None)
Quarter: 2012Q2

REPORT INFORMATION
  Report Type: 
  Country: None (occurrence: None)
  Receive Date: 20120426
  Receipt Date: 20120417
  Transmission Date: 20120825
  Serious: Yes (Other)
  Sender: FDA-Public Use
  Company Number: US-JNJFOC-20120408508

PATIENT
  Sex: Female
  Weight: 58.51 kg

DRUGS (3)
  1. XARELTO [Suspect]
     Route: 048
  2. XARELTO [Suspect]
     Route: 048
     Dates: start: 20120409, end: 20120413
  3. XARELTO [Suspect]
     Indication: ATRIAL FIBRILLATION
     Route: 048
     Dates: start: 20120327, end: 20120408

REACTIONS (10)
  - BLOOD PRESSURE INCREASED [None]
  - VISUAL IMPAIRMENT [None]
  - SKIN EXFOLIATION [None]
  - DYSARTHRIA [None]
  - DYSPNOEA [None]
  - HEART RATE DECREASED [None]
  - HYPOPNOEA [None]
  - HEART RATE INCREASED [None]
  - HEADACHE [None]
  - INCORRECT DOSE ADMINISTERED [None]
